FAERS Safety Report 10042819 (Version 2)
Quarter: 2014Q2

REPORT INFORMATION
  Report Type: Report from Study
  Country: BR (occurrence: BR)
  Receive Date: 20140327
  Receipt Date: 20140422
  Transmission Date: 20141212
  Serious: Yes (Hospitalization, Other)
  Sender: FDA-Public Use
  Company Number: PHHY2014BR034868

PATIENT
  Age: 57 Year
  Sex: Male
  Weight: 105 kg

DRUGS (9)
  1. GALVUS [Suspect]
     Indication: DIABETES MELLITUS
     Dosage: 1 DF (VILD 50 MG), DAILY
     Route: 048
  2. DIOVAN AMLO FIX [Suspect]
     Indication: HYPERTENSION
     Dosage: 1 DF (VALS 320 MG / AMLO 5 MG), DAILY
     Route: 048
  3. MAREVAN [Suspect]
     Dosage: 10 MG, (CUT IN HALF)
  4. LOSARTAN [Concomitant]
     Indication: HYPERTENSION
     Dosage: UNK UKN, UNK
  5. HYDROCHLOROTHIAZIDE [Concomitant]
     Indication: HYPERTENSION
     Dosage: UNK UKN, UNK
  6. AAS [Concomitant]
     Indication: ANTICOAGULANT THERAPY
     Dosage: UNK UKN, UNK
  7. PURAN T4 [Concomitant]
     Indication: THYROID DISORDER
     Dosage: UNK UKN, UNK
  8. ATORVASTATIN [Concomitant]
     Dosage: UNK UKN, UNK
     Dates: start: 201312
  9. OMEPRAZOLE [Concomitant]
     Dosage: UNK UKN, UNK
     Dates: start: 201312

REACTIONS (8)
  - Anxiety [Recovering/Resolving]
  - Feeling abnormal [Unknown]
  - Thrombosis [Recovering/Resolving]
  - Venous injury [Recovering/Resolving]
  - Head discomfort [Recovering/Resolving]
  - Malaise [Recovering/Resolving]
  - Blood pressure increased [Recovering/Resolving]
  - Drug ineffective [Unknown]
